FAERS Safety Report 8013806-7 (Version None)
Quarter: 2011Q4

REPORT INFORMATION
  Report Type: 
  Country: None (occurrence: None)
  Receive Date: 20111229
  Receipt Date: 20111216
  Transmission Date: 20120403
  Serious: Yes (Hospitalization, Other)
  Sender: FDA-Public Use
  Company Number: PHFR2011GB01626

PATIENT
  Sex: Female

DRUGS (5)
  1. ACETAMINOPHEN [Concomitant]
  2. MACROGEL SACHETS [Concomitant]
     Dosage: 1 DF, QDS
  3. CLOZARIL [Suspect]
     Indication: SCHIZOPHRENIA
     Dosage: 175 MG, NOCTE
     Route: 048
     Dates: start: 20091125
  4. LANSOPRAZOLE [Concomitant]
  5. ARIPIPRAZOLE [Concomitant]
     Dosage: 10 MG,
     Route: 048

REACTIONS (10)
  - MALAISE [None]
  - CONSTIPATION [None]
  - ABDOMINAL DISTENSION [None]
  - ENURESIS [None]
  - MENTAL RETARDATION [None]
  - TARDIVE DYSKINESIA [None]
  - ENCOPRESIS [None]
  - DYSKINESIA [None]
  - VOMITING [None]
  - SCHIZOPHRENIA, RESIDUAL TYPE [None]
